FAERS Safety Report 6466122-9 (Version None)
Quarter: 2009Q4

REPORT INFORMATION
  Report Type: 
  Country: None (occurrence: None)
  Receive Date: 20091202
  Receipt Date: 20091120
  Transmission Date: 20100525
  Serious: Yes (Hospitalization, Other)
  Sender: FDA-Public Use
  Company Number: US-ELI_LILLY_AND_COMPANY-US200910007624

PATIENT
  Sex: Female

DRUGS (13)
  1. FORTEO [Suspect]
     Indication: OSTEOPOROSIS
     Dates: start: 20080501
  2. PLAVIX [Concomitant]
     Dosage: 75 MG, UNK
     Dates: start: 20090803
  3. FENTANYL-100 [Concomitant]
     Dosage: 12 UG, UNK
     Dates: start: 20090803, end: 20090101
  4. NORCO [Concomitant]
     Dosage: 10/325
     Dates: start: 20090803
  5. NORCO [Concomitant]
     Dosage: 2 D/F, AS NEEDED
  6. PRILOSEC [Concomitant]
     Dosage: 20 MG, UNK
  7. TENORMIN [Concomitant]
     Dosage: 25 MG, UNK
  8. LASIX [Concomitant]
     Dosage: 40 MG, UNK
  9. LASIX [Concomitant]
     Dosage: 20 MG, UNK
  10. ZOLOFT [Concomitant]
     Dosage: 100 MG, UNK
  11. ASPIRIN [Concomitant]
     Dosage: 325 MG, UNK
  12. ZESTRIL [Concomitant]
     Dosage: 10 MG, 2/D
  13. ZESTRIL [Concomitant]
     Dosage: 10 MG, DAILY (1/D)

REACTIONS (5)
  - ACUTE MYOCARDIAL INFARCTION [None]
  - CARDIAC FAILURE CONGESTIVE [None]
  - HIP FRACTURE [None]
  - HOSPITALISATION [None]
  - PNEUMONIA [None]
